FAERS Safety Report 5224663-6 (Version None)
Quarter: 2007Q1

REPORT INFORMATION
  Report Type: 
  Country: None (occurrence: None)
  Receive Date: 20070126
  Receipt Date: 20070118
  Transmission Date: 20070707
  Serious: Yes (Hospitalization)
  Sender: FDA-Public Use
  Company Number: 2007JP000165

PATIENT
  Age: 82 Year
  Sex: Male
  Weight: 44 kg

DRUGS (7)
  1. VESICARE [Suspect]
     Indication: BENIGN PROSTATIC HYPERPLASIA
     Dosage: 5 MG, UID/QD, ORAL
     Route: 048
     Dates: start: 20061107, end: 20061127
  2. MAGMITT (MAGNESIUM OXIDE) TABLET [Concomitant]
  3. URIEF TABLET [Concomitant]
  4. ERYTHROMYCIN (ERYTHROMYCIN STEARATE) TABLET [Concomitant]
  5. LANIRAPID (METILDIGOXIN) TABLET [Concomitant]
  6. HOKUNALIN (TULOBUTEROL HYDROCHLORIDE) TAPE [Concomitant]
  7. CLEANAL (FUDOSTEINE) TABLET [Concomitant]

REACTIONS (2)
  - ILEUS PARALYTIC [None]
  - PNEUMONIA [None]
